FAERS Safety Report 5125030-6 (Version None)
Quarter: 2006Q4

REPORT INFORMATION
  Report Type: 
  Country: None (occurrence: None)
  Receive Date: 20061010
  Receipt Date: 20061010
  Transmission Date: 20070319
  Serious: Yes (Hospitalization)
  Sender: FDA-Public Use
  Company Number: None

PATIENT
  Age: 62 Year
  Sex: Male

DRUGS (4)
  1. WARFARIN SODIUM [Suspect]
     Indication: CEREBROVASCULAR ACCIDENT
     Dosage: 5 M QD
     Dates: start: 20060301
  2. FOLIC ACID [Concomitant]
  3. MAGNESIUM OXIDE [Concomitant]
  4. OMEPRAZOLE [Concomitant]

REACTIONS (1)
  - GINGIVAL BLEEDING [None]
